FAERS Safety Report 12211253 (Version 1)
Quarter: 2016Q1

REPORT INFORMATION
  Report Type: Spontaneous
  Country: BR (occurrence: BR)
  Receive Date: 20160325
  Receipt Date: 20160325
  Transmission Date: 20160526
  Serious: Yes (Other)
  Sender: FDA-Public Use
  Company Number: BR-PFIZER INC-2016174556

PATIENT
  Age: 44 Year
  Sex: Female
  Weight: 75 kg

DRUGS (1)
  1. EFFEXOR XR [Suspect]
     Active Substance: VENLAFAXINE HYDROCHLORIDE
     Indication: ANTIDEPRESSANT THERAPY
     Dosage: 75 MG, UNSPECIFIED FREQUENCY
     Route: 048
     Dates: start: 20160317, end: 201603

REACTIONS (11)
  - Dyspnoea [Unknown]
  - Drug intolerance [Unknown]
  - Dizziness [Unknown]
  - Vomiting [Recovered/Resolved]
  - Cardiac disorder [Unknown]
  - Asthenia [Unknown]
  - Tremor [Unknown]
  - Nausea [Unknown]
  - Somnolence [Unknown]
  - Feeling abnormal [Unknown]
  - Impaired driving ability [Unknown]

NARRATIVE: CASE EVENT DATE: 201603
